FAERS Safety Report 16608697 (Version 1)
Quarter: 2019Q3

REPORT INFORMATION
  Report Type: Spontaneous
  Country: JP (occurrence: JP)
  Receive Date: 20190722
  Receipt Date: 20190722
  Transmission Date: 20191004
  Serious: Yes (Other)
  Sender: FDA-Public Use
  Company Number: JP-TEVA-2019-JP-004401J

PATIENT
  Sex: Male

DRUGS (6)
  1. PREDNISOLONE TABLETS 5MG. [Suspect]
     Active Substance: PREDNISOLONE
     Indication: COLITIS ULCERATIVE
     Dosage: 5 MILLIGRAM DAILY; IN THE MORNING
     Route: 048
  2. CALONAL [Concomitant]
     Active Substance: ACETAMINOPHEN
     Dosage: DOSAGE IS UNKNOWN
     Route: 048
  3. PREDNISOLONE TABLETS 5MG. [Suspect]
     Active Substance: PREDNISOLONE
     Dosage: 2.5 MILLIGRAM DAILY; IN THE NOON
     Route: 048
  4. PENTASA [Concomitant]
     Active Substance: MESALAMINE
     Dosage: DOSAGE IS UNKNOWN
     Route: 048
  5. BONOTEO [Concomitant]
     Active Substance: MINODRONIC ACID
     Dosage: DOSAGE IS UNKNOWN
     Route: 048
  6. LYRICA [Concomitant]
     Active Substance: PREGABALIN
     Indication: PAIN IN EXTREMITY
     Route: 048

REACTIONS (2)
  - Colitis ulcerative [Unknown]
  - Pain in extremity [Unknown]
